FAERS Safety Report 5099096-6 (Version None)
Quarter: 2006Q3

REPORT INFORMATION
  Report Type: 
  Country: None (occurrence: None)
  Receive Date: 20060731
  Receipt Date: 20060517
  Transmission Date: 20061208
  Serious: Yes (Hospitalization)
  Sender: FDA-Public Use
  Company Number: 225314

PATIENT
  Age: 45 Year
  Sex: Female

DRUGS (5)
  1. RITUXAN [Suspect]
     Indication: T-CELL LYMPHOMA
     Dates: start: 20060408, end: 20060506
  2. CYCLOPHOSPHAMIDE [Concomitant]
  3. DOXORUBICIN HCL [Concomitant]
  4. VINCRISTINE [Concomitant]
  5. PREDNISONE TAB [Concomitant]

REACTIONS (3)
  - DYSPNOEA [None]
  - FATIGUE [None]
  - HYPOAESTHESIA FACIAL [None]
